FAERS Safety Report 5080131-6 (Version None)
Quarter: 2006Q3

REPORT INFORMATION
  Report Type: 
  Country: None (occurrence: None)
  Receive Date: 20060810
  Receipt Date: 20060807
  Transmission Date: 20061208
  Serious: Yes (Death)
  Sender: FDA-Public Use
  Company Number: T05-USA-01979-01

PATIENT
  Age: 84 Year
  Sex: Male
  Weight: 84.2783 kg

DRUGS (13)
  1. MEMANTINE HCL [Suspect]
     Indication: DEMENTIA ALZHEIMER'S TYPE
     Dosage: 4 TABLET QD PO
     Route: 048
     Dates: start: 20050304, end: 20050525
  2. ATENOLOL [Concomitant]
  3. ARICEPT [Concomitant]
  4. ALLOPURINOL [Concomitant]
  5. EC ASA (ACETYLSALICYLIC ACID ENTERIC COATED) [Concomitant]
  6. MULTIVITAMIN [Concomitant]
  7. TRAZODONE HCL [Concomitant]
  8. EXTRA STRENGTH TYLENOL [Concomitant]
  9. SEROQUEL [Concomitant]
  10. MYLANTA [Concomitant]
  11. MILK OF MAGNESIA TAB [Concomitant]
  12. ACETAMINOPHEN [Concomitant]
  13. NAPROXEN [Concomitant]

REACTIONS (2)
  - ARTERIOSCLEROSIS CORONARY ARTERY [None]
  - CARDIAC FAILURE [None]
